FAERS Safety Report 7152888-1 (Version None)
Quarter: 2010Q4

REPORT INFORMATION
  Report Type: 
  Country: None (occurrence: None)
  Receive Date: 20101130
  Receipt Date: 20101119
  Transmission Date: 20110411
  Serious: Yes (Hospitalization)
  Sender: FDA-Public Use
  Company Number: TRP_07397_2010

PATIENT
  Sex: Female
  Weight: 63.5036 kg

DRUGS (3)
  1. INFERGEN [Suspect]
     Indication: HEPATITIS C
     Dosage: (15 UG QD)
     Dates: start: 20100730, end: 20101119
  2. RIBAVIRIN [Suspect]
     Indication: HEPATITIS C
     Dosage: (1000 MG, DAILY ORAL)
     Route: 048
     Dates: start: 20100730, end: 20101119
  3. EFFEXOR [Concomitant]

REACTIONS (4)
  - ABDOMINAL PAIN [None]
  - ANAEMIA [None]
  - METASTASES TO LIVER [None]
  - NAUSEA [None]
